FAERS Safety Report 7510417-4 (Version None)
Quarter: 2011Q2

REPORT INFORMATION
  Report Type: 
  Country: None (occurrence: None)
  Receive Date: 20110527
  Receipt Date: 20110524
  Transmission Date: 20111010
  Serious: Yes (Hospitalization)
  Sender: FDA-Public Use
  Company Number: DE-MERCK-1105DEU00037

PATIENT
  Age: 74 Year
  Sex: Male

DRUGS (16)
  1. PREDNISONE [Concomitant]
     Route: 065
  2. PYRIDOSTIGMINE BROMIDE [Concomitant]
     Route: 065
  3. PROMETHAZINE HYDROCHLORIDE [Concomitant]
     Route: 065
  4. SIMVASTATIN [Concomitant]
     Route: 048
  5. PYRIDOSTIGMINE BROMIDE [Concomitant]
     Route: 065
  6. AMPHOTERICIN B [Concomitant]
     Route: 065
  7. DIPYRONE [Concomitant]
     Route: 065
  8. SINGULAIR [Suspect]
     Route: 048
     Dates: start: 20110401
  9. RAMIPRIL [Concomitant]
     Route: 065
  10. TORSEMIDE [Concomitant]
     Route: 065
  11. NEBIVOLOL HYDROCHLORIDE [Concomitant]
     Route: 065
  12. PHENPROCOUMON [Concomitant]
     Route: 065
  13. PANTOPRAZOLE SODIUM [Concomitant]
     Route: 065
  14. AZATHIOPRINE [Concomitant]
     Route: 065
  15. ENOXAPARIN SODIUM [Concomitant]
     Route: 051
  16. CALCIUM CITRATE AND CHOLECALCIFEROL [Concomitant]
     Route: 048

REACTIONS (5)
  - AGGRESSION [None]
  - RESTLESSNESS [None]
  - LOGORRHOEA [None]
  - AGITATION [None]
  - HALLUCINATION [None]
